FAERS Safety Report 6890828-0 (Version None)
Quarter: 2010Q3

REPORT INFORMATION
  Report Type: 
  Country: None (occurrence: None)
  Receive Date: 20100731
  Receipt Date: 20090327
  Transmission Date: 20110219
  Serious: No
  Sender: FDA-Public Use
  Company Number: US-PFIZER INC-2006072571

PATIENT
  Age: 52 Year
  Sex: Female
  Weight: 81.65 kg

DRUGS (4)
  1. LIPITOR [Suspect]
     Indication: BLOOD CHOLESTEROL INCREASED
     Dosage: 10 MG, 1X/DAY
     Route: 065
     Dates: start: 20060529
  2. NORVASC [Suspect]
     Indication: HYPERTENSION
     Dosage: 5 MG, 1X/DAY
     Dates: start: 20020211
  3. CITRACAL [Suspect]
     Indication: MINERAL SUPPLEMENTATION
     Dosage: 200 MG, UNK
     Dates: start: 20050601
  4. CITRACAL + D [Suspect]
     Indication: MINERAL SUPPLEMENTATION
     Dosage: 200 MG, UNK
     Route: 065
     Dates: start: 20050601

REACTIONS (12)
  - ANXIETY [None]
  - BLOOD CHOLESTEROL INCREASED [None]
  - BLOOD TRIGLYCERIDES INCREASED [None]
  - CONTUSION [None]
  - DYSPEPSIA [None]
  - FEELING ABNORMAL [None]
  - FEELING OF RELAXATION [None]
  - HIATUS HERNIA [None]
  - HYPERTENSION [None]
  - NERVOUSNESS [None]
  - RESPIRATORY RATE INCREASED [None]
  - SLUGGISHNESS [None]
